FAERS Safety Report 7854076-X (Version None)
Quarter: 2011Q4

REPORT INFORMATION
  Report Type: 
  Country: None (occurrence: None)
  Receive Date: 20111026
  Receipt Date: 20111019
  Transmission Date: 20120403
  Serious: Yes (Other)
  Sender: FDA-Public Use
  Company Number: AU-PFIZER INC-2010026959

PATIENT
  Age: 26 Year
  Sex: Female

DRUGS (4)
  1. ZOLOFT [Suspect]
     Indication: ANXIETY
     Dosage: 100 MG, UNK
  2. ZOLOFT [Suspect]
     Indication: OBSESSIVE-COMPULSIVE DISORDER
     Dosage: 200 MG, UNK
  3. DEXAMPHETAMINE [Concomitant]
     Indication: ATTENTION DEFICIT/HYPERACTIVITY DISORDER
     Dosage: 15 MG, UNK
  4. ZOLOFT [Suspect]
     Indication: DEPRESSION

REACTIONS (9)
  - PRE-ECLAMPSIA [None]
  - PARAESTHESIA [None]
  - GALACTORRHOEA [None]
  - VISUAL IMPAIRMENT [None]
  - SKIN DISORDER [None]
  - HYPERPROLACTINAEMIA [None]
  - WEIGHT DECREASED [None]
  - BULIMIA NERVOSA [None]
  - ALOPECIA [None]
